FAERS Safety Report 5418520-X (Version None)
Quarter: 2007Q3

REPORT INFORMATION
  Report Type: 
  Country: None (occurrence: None)
  Receive Date: 20070817
  Receipt Date: 20070810
  Transmission Date: 20080115
  Serious: Yes (Hospitalization)
  Sender: FDA-Public Use
  Company Number: US-BOEHRINGER INGELHEIM PHARMACEUTICALS, INC.-2007-BP-18957BP

PATIENT
  Sex: Female

DRUGS (11)
  1. MIRAPEX [Suspect]
     Indication: PARKINSON'S DISEASE
     Route: 048
     Dates: start: 20040101
  2. CARBIDOPA- LEVO [Concomitant]
     Indication: PARKINSON'S DISEASE
     Route: 048
  3. CEPHALEXIN [Concomitant]
     Route: 048
  4. CLONAZEPAM [Concomitant]
     Route: 048
  5. LEVOXYL [Concomitant]
     Route: 048
  6. SERTRALINE HCL [Concomitant]
     Route: 048
  7. LEVIDOPALERO [Concomitant]
     Route: 048
  8. NABUMETONE [Concomitant]
     Route: 048
  9. TRIAMTERENE AND HYDROCHLOROTHIAZIDE [Concomitant]
     Route: 048
  10. SEROQUEL [Concomitant]
     Route: 048
  11. PRILOSEC [Concomitant]
     Route: 048

REACTIONS (5)
  - BURNING SENSATION [None]
  - DYSURIA [None]
  - MALAISE [None]
  - PAIN [None]
  - SCAR [None]
